FAERS Safety Report 8621000-1 (Version None)
Quarter: 2012Q3

REPORT INFORMATION
  Report Type: 
  Country: None (occurrence: None)
  Receive Date: 20120824
  Receipt Date: 20120820
  Transmission Date: 20120928
  Serious: Yes (Other)
  Sender: FDA-Public Use
  Company Number: CA-AMGEN-CANSP2012034002

PATIENT
  Age: 44 Year
  Sex: Male
  Weight: 80 kg

DRUGS (8)
  1. HYDROMORPHONE HYDROCHLORIDE [Concomitant]
     Dosage: 2 MG, PRN
  2. ZOPLICONE [Concomitant]
     Indication: SEDATION
     Dosage: 7.5 MG, QHS
  3. ENBREL [Suspect]
     Indication: PSORIATIC ARTHROPATHY
     Dosage: 50 MG, 2 TIMES/WK
     Dates: start: 20070601
  4. TYLENOL W/ CODEINE NO. 3 [Concomitant]
     Dosage: UNK, PRN
  5. ENBREL [Suspect]
     Dosage: 50 MG, QWK
     Route: 058
     Dates: start: 20080101
  6. TRIDURAL [Concomitant]
     Dosage: 200 MG, QD
  7. COUMADIN [Concomitant]
     Indication: ANTICOAGULANT THERAPY
     Dosage: 6 MG, QD
     Route: 048
     Dates: start: 20070101
  8. TYLENOL W/ CODEINE NO. 3 [Concomitant]
     Indication: PAIN
     Dosage: UNK UNK, TID
     Route: 048

REACTIONS (9)
  - HYPERHIDROSIS [None]
  - DEEP VEIN THROMBOSIS [None]
  - MYOCARDIAL INFARCTION [None]
  - INTERVERTEBRAL DISC DEGENERATION [None]
  - PLEURITIC PAIN [None]
  - HILAR LYMPHADENOPATHY [None]
  - VASCULAR CALCIFICATION [None]
  - FAMILY STRESS [None]
  - PULMONARY EMBOLISM [None]
